FAERS Safety Report 17364932 (Version 1)
Quarter: 2020Q1

REPORT INFORMATION
  Report Type: Spontaneous
  Country: IE (occurrence: IE)
  Receive Date: 20200204
  Receipt Date: 20200204
  Transmission Date: 20200409
  Serious: Yes (Other)
  Sender: FDA-Public Use
  Company Number: IE-ADVANZ PHARMA-202001000498

PATIENT

DRUGS (3)
  1. RAMIPRIL (G) [Concomitant]
     Dosage: UNK
  2. DISTACLOR [Concomitant]
     Indication: LOWER RESPIRATORY TRACT INFECTION
     Dosage: 500 MG
     Dates: start: 20191221
  3. PREDNISOLONE. [Suspect]
     Active Substance: PREDNISOLONE
     Indication: LOWER RESPIRATORY TRACT INFECTION
     Dosage: 30 MG A DAY FOR 6 DAYS, THEN REDUCING BY 5 MG A DAY UNTIL COMPLETE
     Route: 048
     Dates: start: 20191221, end: 20191231

REACTIONS (1)
  - Visual impairment [Not Recovered/Not Resolved]
